FAERS Safety Report 18663224 (Version 1)
Quarter: 2020Q4

REPORT INFORMATION
  Report Type: Spontaneous
  Country: GB (occurrence: GB)
  Receive Date: 20201224
  Receipt Date: 20201224
  Transmission Date: 20210114
  Serious: Yes (Congenital Anomaly, Other)
  Sender: FDA-Public Use
  Company Number: GB-ELI_LILLY_AND_COMPANY-GB202012011654

PATIENT
  Age: 19 Year
  Sex: Male
  Weight: 44 kg

DRUGS (14)
  1. EPIDIOLEX [Interacting]
     Active Substance: CANNABIDIOL
     Dosage: 400 MG, DAILY
     Route: 048
     Dates: start: 20201014
  2. CLOBAZAM. [Concomitant]
     Active Substance: CLOBAZAM
     Dosage: 4 MG, DAILY
     Route: 065
  3. LANSOPRAZOLE. [Concomitant]
     Active Substance: LANSOPRAZOLE
     Indication: PRODUCT USED FOR UNKNOWN INDICATION
     Dosage: UNK, UNKNOWN
     Route: 065
  4. TOPIRAMATE. [Concomitant]
     Active Substance: TOPIRAMATE
     Indication: PRODUCT USED FOR UNKNOWN INDICATION
     Dosage: UNK, UNKNOWN
     Route: 065
  5. CHLORAL HYDRATE [Concomitant]
     Active Substance: CHLORAL HYDRATE
     Indication: PRODUCT USED FOR UNKNOWN INDICATION
     Dosage: UNK, UNKNOWN
     Route: 065
  6. EPIDIOLEX [Interacting]
     Active Substance: CANNABIDIOL
     Dosage: 6 MG/KG, DAILY
     Route: 048
     Dates: start: 20200916, end: 20200930
  7. EPIDIOLEX [Interacting]
     Active Substance: CANNABIDIOL
     Dosage: 8 MG/KG, DAILY
     Route: 048
     Dates: start: 20200930, end: 20201014
  8. CLOBAZAM. [Concomitant]
     Active Substance: CLOBAZAM
     Indication: PRODUCT USED FOR UNKNOWN INDICATION
     Dosage: 8 MG, DAILY
     Route: 065
  9. PHENOBARBITAL. [Concomitant]
     Active Substance: PHENOBARBITAL
     Indication: PRODUCT USED FOR UNKNOWN INDICATION
     Dosage: UNK, UNKNOWN
     Route: 065
  10. COLECALCIFEROL [Concomitant]
     Active Substance: CHOLECALCIFEROL
     Indication: PRODUCT USED FOR UNKNOWN INDICATION
     Dosage: UNK, UNKNOWN
     Route: 065
  11. FLUOXETINE [Suspect]
     Active Substance: FLUOXETINE HYDROCHLORIDE
     Indication: PRODUCT USED FOR UNKNOWN INDICATION
     Dosage: 36 MG, DAILY
     Route: 065
  12. ETHOSUXIMIDE. [Concomitant]
     Active Substance: ETHOSUXIMIDE
     Indication: PRODUCT USED FOR UNKNOWN INDICATION
     Dosage: UNK, UNKNOWN
     Route: 065
  13. EPIDIOLEX [Interacting]
     Active Substance: CANNABIDIOL
     Indication: EPILEPSY
     Dosage: 4 MG/KG, DAILY
     Route: 048
     Dates: start: 20200902, end: 20200916
  14. EPIDIOLEX [Interacting]
     Active Substance: CANNABIDIOL
     Dosage: 500 MG, DAILY
     Route: 048
     Dates: end: 202012

REACTIONS (5)
  - Diarrhoea [Recovered/Resolved]
  - Decreased appetite [Recovered/Resolved]
  - Somnolence [Recovered/Resolved]
  - Drug interaction [Unknown]
  - Social avoidant behaviour [Unknown]

NARRATIVE: CASE EVENT DATE: 20200903
